FAERS Safety Report 7459555-5 (Version None)
Quarter: 2011Q2

REPORT INFORMATION
  Report Type: 
  Country: None (occurrence: None)
  Receive Date: 20110505
  Receipt Date: 20110427
  Transmission Date: 20111010
  Serious: Yes (Other)
  Sender: FDA-Public Use
  Company Number: FR-BRISTOL-MYERS SQUIBB COMPANY-15704513

PATIENT
  Age: 90 Year
  Sex: Female

DRUGS (3)
  1. ACUITEL [Concomitant]
     Dosage: 1 DF = 1TAB
  2. TEMERIT [Concomitant]
     Dosage: 1 DF = HALF TAB
  3. COUMADIN [Suspect]
     Dosage: COUMADINE 2 MG
     Dates: start: 20100715

REACTIONS (11)
  - HAEMOPTYSIS [None]
  - HAEMATOMA [None]
  - DYSPNOEA [None]
  - MUSCULOSKELETAL PAIN [None]
  - ALOPECIA [None]
  - FATIGUE [None]
  - FALL [None]
  - BALANCE DISORDER [None]
  - DISCOMFORT [None]
  - HAND FRACTURE [None]
  - SOMNOLENCE [None]
